FAERS Safety Report 7368303-9 (Version None)
Quarter: 2011Q1

REPORT INFORMATION
  Report Type: 
  Country: None (occurrence: None)
  Receive Date: 20110311
  Receipt Date: 20110223
  Transmission Date: 20110831
  Serious: Yes (Hospitalization)
  Sender: FDA-Public Use
  Company Number: 1000019163

PATIENT
  Age: 19 Year
  Sex: Female

DRUGS (8)
  1. DIAZEPAM [Concomitant]
  2. CITALOPRAM HYDROBROMIDE [Suspect]
     Indication: MAJOR DEPRESSION
     Dosage: ORAL
     Route: 048
  3. CLONAZEPAM [Concomitant]
  4. LEVETIRACETAM (LEVETIRACETAM) (LEVETIRACETAM) [Concomitant]
  5. LAMOTRIGINE [Concomitant]
  6. LORAZEPAM [Concomitant]
  7. VALPROATE (VALPROATE SEMISODIUM) [Suspect]
     Indication: CONVULSION
     Dosage: ORAL
     Route: 048
  8. ZONISAMIDE(ZONISAMIDE)(ZONISAMIDE) [Concomitant]

REACTIONS (15)
  - PRESSURE OF SPEECH [None]
  - ANXIETY [None]
  - DEPRESSED MOOD [None]
  - MYOCLONUS [None]
  - PROCEDURAL PAIN [None]
  - IRRITABILITY [None]
  - TACHYPHRENIA [None]
  - HALLUCINATION, AUDITORY [None]
  - MANIA [None]
  - THROMBOCYTOPENIA [None]
  - OVERDOSE [None]
  - THERAPEUTIC RESPONSE DECREASED [None]
  - DISTRACTIBILITY [None]
  - VIOLENCE-RELATED SYMPTOM [None]
  - LEUKOPENIA [None]
